FAERS Safety Report 8732504 (Version 2)
Quarter: 2015Q2

REPORT INFORMATION
  Report Type: Report from Study
  Country: US (occurrence: US)
  Receive Date: 20120820
  Receipt Date: 20150401
  Transmission Date: 20150821
  Serious: Yes (Hospitalization)
  Sender: FDA-Public Use
  Company Number: US-ROCHE-1099786

PATIENT
  Sex: Male

DRUGS (2)
  1. ACTIVASE [Suspect]
     Active Substance: ALTEPLASE
     Indication: MYOCARDIAL INFARCTION
     Route: 042
  2. ACTIVASE [Suspect]
     Active Substance: ALTEPLASE
     Dosage: THERAPY DATE: 08/OCT/2015
     Route: 042
     Dates: start: 19911004

REACTIONS (4)
  - Rales [Unknown]
  - Myocardial infarction [Unknown]
  - Supraventricular extrasystoles [Unknown]
  - Chest discomfort [Unknown]
